FAERS Safety Report 6102613-8 (Version None)
Quarter: 2009Q1

REPORT INFORMATION
  Report Type: 
  Country: None (occurrence: None)
  Receive Date: 20090304
  Receipt Date: 20081009
  Transmission Date: 20090719
  Serious: No
  Sender: FDA-Public Use
  Company Number: A0751142A

PATIENT
  Sex: Male

DRUGS (2)
  1. REQUIP [Suspect]
     Indication: RESTLESS LEGS SYNDROME
     Dosage: 4MG TWICE PER DAY
     Route: 048
     Dates: start: 20051001
  2. NO CONCURRENT MEDICATION [Concomitant]

REACTIONS (2)
  - FATIGUE [None]
  - SOMNOLENCE [None]
